FAERS Safety Report 11224589 (Version 1)
Quarter: 2015Q2

REPORT INFORMATION
  Report Type: Spontaneous
  Country: FR (occurrence: FR)
  Receive Date: 20150629
  Receipt Date: 20150629
  Transmission Date: 20150821
  Serious: Yes (Other)
  Sender: FDA-Public Use
  Company Number: FR-TEVA-371430ISR

PATIENT
  Age: 57 Year
  Sex: Female

DRUGS (8)
  1. SORAFENIB [Suspect]
     Active Substance: SORAFENIB
     Indication: THYROID CANCER METASTATIC
     Dosage: 800 MILLIGRAM DAILY;
     Route: 065
     Dates: start: 200810
  2. DOXORUBICIN NOS [Suspect]
     Active Substance: DOXORUBICIN
     Indication: THYROID CANCER METASTATIC
     Dosage: Q4W (6 CYCLES)
     Dates: start: 200610, end: 200703
  3. CARBOPLATIN. [Suspect]
     Active Substance: CARBOPLATIN
     Indication: THYROID CANCER METASTATIC
     Dosage: AUC5 Q4W (6 CYCLES)
     Route: 065
     Dates: end: 200908
  4. SUNITINIB [Suspect]
     Active Substance: SUNITINIB
     Indication: THYROID CANCER METASTATIC
     Dosage: 37.5 MILLIGRAM DAILY; D1-21 Q4W
     Dates: start: 201003
  5. CISPLATIN. [Suspect]
     Active Substance: CISPLATIN
     Indication: THYROID CANCER METASTATIC
     Dosage: Q4W (6 CYCLES)
     Route: 065
     Dates: start: 200610, end: 200703
  6. VANDETANIB. [Suspect]
     Active Substance: VANDETANIB
     Indication: THYROID CANCER METASTATIC
     Dosage: 300 MILLIGRAM DAILY;
     Route: 065
     Dates: start: 200801, end: 200807
  7. PACLITAXEL. [Suspect]
     Active Substance: PACLITAXEL
     Indication: THYROID CANCER METASTATIC
     Dosage: Q4W (6 CYCLES)
     Route: 065
     Dates: end: 200908
  8. SUNITINIB [Suspect]
     Active Substance: SUNITINIB
     Dosage: 50 MILLIGRAM DAILY; D1-21 Q4W
     Dates: start: 201011

REACTIONS (13)
  - Alopecia [Unknown]
  - Fatigue [Unknown]
  - Palmar-plantar erythrodysaesthesia syndrome [Unknown]
  - Diarrhoea [Unknown]
  - Decreased appetite [Unknown]
  - Anaemia [Unknown]
  - Weight decreased [Unknown]
  - Gastrointestinal toxicity [Unknown]
  - Neurotoxicity [Unknown]
  - Nausea [Unknown]
  - Abdominal pain [Unknown]
  - Asthenia [Unknown]
  - Skin toxicity [Unknown]
